FAERS Safety Report 4285647-8 (Version None)
Quarter: 2004Q1

REPORT INFORMATION
  Report Type: 
  Country: None (occurrence: None)
  Receive Date: 20040203
  Receipt Date: 20040126
  Transmission Date: 20041129
  Serious: Yes (Other)
  Sender: FDA-Public Use
  Company Number: BR-JNJFOC-20040105465

PATIENT
  Age: 23 Year
  Sex: Female
  Weight: 57 kg

DRUGS (2)
  1. MICRONOR [Suspect]
     Indication: CONTRACEPTION
     Dosage: 0.35 MG, 1IN 1 DAY, ORAL
     Route: 048
     Dates: start: 20040114, end: 20040122
  2. TYLENOL [Concomitant]

REACTIONS (3)
  - HEADACHE [None]
  - METRORRHAGIA [None]
  - SYNCOPE [None]
